FAERS Safety Report 24748217 (Version 1)
Quarter: 2024Q4

REPORT INFORMATION
  Report Type: Spontaneous
  Country: US (occurrence: US)
  Receive Date: 20241218
  Receipt Date: 20241218
  Transmission Date: 20250115
  Serious: No
  Sender: PFIZER
  Company Number: US-PFIZER INC-202400327219

PATIENT
  Sex: Female

DRUGS (2)
  1. BOSULIF [Suspect]
     Active Substance: BOSUTINIB MONOHYDRATE
     Dosage: FOR ONE WEEK THEN STOPPED IT FOR 3 OR 4 DAYS, THEN RESTARTED FOR A WEEK THEN STOPPED FOR A WEEK
  2. BOSULIF [Suspect]
     Active Substance: BOSUTINIB MONOHYDRATE
     Dosage: THREE TABLETS DAILY

REACTIONS (2)
  - Dizziness [Unknown]
  - Intentional product misuse [Unknown]
